FAERS Safety Report 21071776 (Version 1)
Quarter: 2022Q3

REPORT INFORMATION
  Report Type: Spontaneous
  Country: AU (occurrence: AU)
  Receive Date: 20220712
  Receipt Date: 20220712
  Transmission Date: 20221027
  Serious: Yes (Other)
  Sender: FDA-Public Use
  Company Number: AU-BAXTER-2022BAX014050

PATIENT

DRUGS (12)
  1. CYCLOPHOSPHAMIDE [Suspect]
     Active Substance: CYCLOPHOSPHAMIDE
     Indication: Thymic cancer metastatic
     Dosage: UNK
     Route: 065
     Dates: start: 202008
  2. CYCLOPHOSPHAMIDE [Suspect]
     Active Substance: CYCLOPHOSPHAMIDE
     Dosage: UNK
     Route: 065
     Dates: start: 202102
  3. CYCLOPHOSPHAMIDE [Suspect]
     Active Substance: CYCLOPHOSPHAMIDE
     Dosage: TWO CYCLES
     Route: 065
     Dates: start: 202107, end: 202108
  4. DOXORUBICIN [Suspect]
     Active Substance: DOXORUBICIN
     Indication: Thymic cancer metastatic
     Dosage: UNK
     Route: 065
     Dates: start: 202102
  5. DOXORUBICIN [Suspect]
     Active Substance: DOXORUBICIN
     Dosage: TWO CYCLES
     Route: 065
     Dates: start: 202107, end: 202108
  6. VINCRISTINE [Suspect]
     Active Substance: VINCRISTINE
     Indication: Thymic cancer metastatic
     Dosage: UNK
     Route: 065
     Dates: start: 202008
  7. VINCRISTINE [Suspect]
     Active Substance: VINCRISTINE
     Dosage: UNK
     Route: 065
     Dates: start: 202102
  8. VINCRISTINE [Suspect]
     Active Substance: VINCRISTINE
     Dosage: 2 CYCLES
     Route: 065
     Dates: start: 202107, end: 202108
  9. CARBOPLATIN [Suspect]
     Active Substance: CARBOPLATIN
     Indication: Thymic cancer metastatic
     Dosage: 4 CYCLES
     Route: 065
     Dates: start: 201907, end: 201909
  10. CARBOPLATIN [Suspect]
     Active Substance: CARBOPLATIN
     Dosage: UNK
     Route: 065
     Dates: start: 202002
  11. ETOPOSIDE [Suspect]
     Active Substance: ETOPOSIDE
     Indication: Thymic cancer metastatic
     Dosage: 4 CYCLES
     Route: 065
     Dates: start: 201907, end: 201909
  12. ETOPOSIDE [Suspect]
     Active Substance: ETOPOSIDE
     Dosage: UNK
     Route: 065
     Dates: start: 202002

REACTIONS (2)
  - Thymic cancer metastatic [Unknown]
  - Disease progression [Unknown]

NARRATIVE: CASE EVENT DATE: 20160101
